FAERS Safety Report 16814717 (Version 1)
Quarter: 2019Q3

REPORT INFORMATION
  Report Type: Spontaneous
  Country: CN (occurrence: CN)
  Receive Date: 20190917
  Receipt Date: 20190917
  Transmission Date: 20191005
  Serious: Yes (Other)
  Sender: FDA-Public Use
  Company Number: CN-ROCHE-2401407

PATIENT
  Age: 32 Year
  Sex: Male

DRUGS (14)
  1. TIGECYCLINE. [Concomitant]
     Active Substance: TIGECYCLINE
     Indication: INFECTION
     Route: 065
     Dates: start: 20180730
  2. CEFTAZIDIME. [Concomitant]
     Active Substance: CEFTAZIDIME
     Indication: INFECTION
     Route: 041
     Dates: start: 20180906
  3. AMPHOTERICIN B, LIPOSOME [Concomitant]
     Active Substance: AMPHOTERICIN B
     Indication: INFECTION
     Route: 065
     Dates: start: 20180615
  4. POLYMYXIN B. [Concomitant]
     Active Substance: POLYMYXIN B
     Dosage: NEXT INFUSION: 14/AUG/2018
     Route: 065
     Dates: start: 20180809
  5. MEROPENEM. [Concomitant]
     Active Substance: MEROPENEM
     Indication: INFECTION
     Route: 065
     Dates: start: 20180615
  6. GANCICLOVIR SODIUM. [Suspect]
     Active Substance: GANCICLOVIR SODIUM
     Indication: INFECTION
     Route: 065
     Dates: start: 20180615
  7. TEICOPLANIN [Concomitant]
     Active Substance: TEICOPLANIN
     Indication: INFECTION
     Route: 065
     Dates: start: 201806
  8. POLYMYXIN B. [Concomitant]
     Active Substance: POLYMYXIN B
     Indication: INFECTION
     Dosage: NEXT DOSE: 04/AUG/2018
     Route: 065
     Dates: start: 20180731
  9. CLINDAMYCIN. [Concomitant]
     Active Substance: CLINDAMYCIN
     Indication: INFECTION
     Route: 065
     Dates: start: 20180804
  10. CARBOPLATIN. [Concomitant]
     Active Substance: CARBOPLATIN
     Indication: INFECTION
     Route: 065
     Dates: start: 20180814
  11. PRIMAQUINE [Concomitant]
     Active Substance: PRIMAQUINE PHOSPHATE
     Indication: INFECTION
     Route: 065
     Dates: start: 2018
  12. CLINDAMYCIN. [Concomitant]
     Active Substance: CLINDAMYCIN
     Route: 065
     Dates: start: 20180814
  13. CEFOPERAZONE SODIUM AND SULBACTAM SODIUM [Concomitant]
     Active Substance: CEFOPERAZONE SODIUM\SULBACTAM SODIUM
     Indication: INFECTION
     Route: 065
     Dates: start: 20180814
  14. AVIBACTAM SODIUM. [Concomitant]
     Active Substance: AVIBACTAM SODIUM
     Indication: INFECTION
     Route: 041
     Dates: start: 20180906

REACTIONS (2)
  - Pneumonia klebsiella [Unknown]
  - Bacterial infection [Unknown]
